FAERS Safety Report 11831439 (Version 3)
Quarter: 2016Q1

REPORT INFORMATION
  Report Type: Report from Study
  Country: US (occurrence: US)
  Receive Date: 20151214
  Receipt Date: 20160316
  Transmission Date: 20160525
  Serious: No
  Sender: FDA-Public Use
  Company Number: PHEH2015US025923

PATIENT
  Age: 36 Year
  Sex: Male
  Weight: 78.47 kg

DRUGS (6)
  1. EXTAVIA [Suspect]
     Active Substance: INTERFERON BETA-1B
     Indication: MULTIPLE SCLEROSIS
     Dosage: WEEKS 1-2: 0.0625MG (0.25ML) QOD
     Route: 058
     Dates: start: 20150707
  2. EXTAVIA [Suspect]
     Active Substance: INTERFERON BETA-1B
     Dosage: WEEKS 7+: 0.25 MG (1ML)
     Route: 058
     Dates: start: 20150707
  3. BACLOFEN. [Concomitant]
     Active Substance: BACLOFEN
     Indication: PRODUCT USED FOR UNKNOWN INDICATION
     Route: 065
  4. TRAMADOL. [Concomitant]
     Active Substance: TRAMADOL
     Indication: PRODUCT USED FOR UNKNOWN INDICATION
     Route: 065
  5. EXTAVIA [Suspect]
     Active Substance: INTERFERON BETA-1B
     Dosage: WEEKS 5-6: 0.1875MG (0.75 ML)
     Route: 058
     Dates: start: 20150707
  6. EXTAVIA [Suspect]
     Active Substance: INTERFERON BETA-1B
     Dosage: WEEKS 3-4: 0.125 MG (0.5 ML), QOD
     Route: 058
     Dates: start: 20150707

REACTIONS (4)
  - Drug administered at inappropriate site [Unknown]
  - Device issue [Recovered/Resolved]
  - Device malfunction [Unknown]
  - Fatigue [Unknown]

NARRATIVE: CASE EVENT DATE: 201510
